FAERS Safety Report 6801081-8 (Version None)
Quarter: 2010Q2

REPORT INFORMATION
  Report Type: 
  Country: None (occurrence: None)
  Receive Date: 20100629
  Receipt Date: 20100625
  Transmission Date: 20101027
  Serious: Yes (Hospitalization)
  Sender: FDA-Public Use
  Company Number: CH-BAYER-201030143GPV

PATIENT
  Age: 76 Year
  Sex: Male

DRUGS (8)
  1. ASPIRIN [Suspect]
     Indication: DRUG USE FOR UNKNOWN INDICATION
     Dosage: TOTAL DAILY DOSE: 100 MG  UNIT DOSE: 100 MG
     Route: 048
     Dates: start: 20090601
  2. INDOCIN [Suspect]
     Indication: DRUG USE FOR UNKNOWN INDICATION
     Route: 048
     Dates: start: 20100226, end: 20100311
  3. PLAVIX [Suspect]
     Indication: DRUG USE FOR UNKNOWN INDICATION
     Dates: start: 20100601
  4. MEPHANOL [Concomitant]
     Dates: start: 20100226
  5. METOPROLOL SUCCINATE [Concomitant]
  6. DIOVAN [Concomitant]
     Route: 048
  7. AMLODIPINE [Concomitant]
  8. SORTIS [Concomitant]

REACTIONS (4)
  - ANAEMIA [None]
  - DRUG ABUSE [None]
  - GASTROINTESTINAL HAEMORRHAGE [None]
  - SYNCOPE [None]
